FAERS Safety Report 20862027 (Version 1)
Quarter: 2022Q2

REPORT INFORMATION
  Report Type: Spontaneous
  Country: US (occurrence: None)
  Receive Date: 20220521
  Receipt Date: 20220521
  Transmission Date: 20220720
  Serious: Yes (Other)
  Sender: FDA-Public Use
  Company Number: None

PATIENT
  Age: 53 Year
  Sex: Female
  Weight: 94.5 kg

DRUGS (1)
  1. EMGALITY [Suspect]
     Active Substance: GALCANEZUMAB-GNLM
     Indication: Vestibular migraine
     Dosage: OTHER QUANTITY : 2 INJECTION(S);?OTHER FREQUENCY : EVERY 28 DAYS;?OTHER ROUTE : INJECTION;?
     Route: 050
     Dates: start: 20220520

REACTIONS (9)
  - Diarrhoea [None]
  - Abdominal distension [None]
  - Abdominal pain [None]
  - Vomiting [None]
  - Feeling hot [None]
  - Hyperhidrosis [None]
  - Paraesthesia oral [None]
  - Hypoaesthesia oral [None]
  - Diarrhoea haemorrhagic [None]

NARRATIVE: CASE EVENT DATE: 20220520
